FAERS Safety Report 14954016 (Version 1)
Quarter: 2018Q2

REPORT INFORMATION
  Report Type: Report from Study
  Country: DE (occurrence: DE)
  Receive Date: 20180530
  Receipt Date: 20180530
  Transmission Date: 20180711
  Serious: Yes (Death)
  Sender: FDA-Public Use
  Company Number: DE-PFIZER INC-2018219410

PATIENT
  Age: 46 Year
  Sex: Male

DRUGS (3)
  1. CYTARABINE. [Suspect]
     Active Substance: CYTARABINE
     Indication: ACUTE MYELOID LEUKAEMIA
     Dosage: 1100 MG/M2, CYCLIC (DOUBLE-INDUCTION THERAPY (TWO CYCLES OF CHEMOTHERAPY 3 WEEKS APART))
  2. ETOPOSIDE. [Suspect]
     Active Substance: ETOPOSIDE
     Indication: ACUTE MYELOID LEUKAEMIA
     Dosage: 800 MG/M2, CYCLIC (DOUBLE-INDUCTION THERAPY (TWO CYCLES OF CHEMOTHERAPY 3 WEEKS APART))
  3. IDARUBICIN HCL [Suspect]
     Active Substance: IDARUBICIN HYDROCHLORIDE
     Indication: ACUTE MYELOID LEUKAEMIA
     Dosage: 280 MG/M2, CYCLIC (DOUBLE-INDUCTION THERAPY (TWO CYCLES OF CHEMOTHERAPY 3 WEEKS APART))

REACTIONS (3)
  - Pneumonia [Fatal]
  - Stenotrophomonas infection [Fatal]
  - Pulmonary haemorrhage [Fatal]
